FAERS Safety Report 18100161 (Version 1)
Quarter: 2020Q3

REPORT INFORMATION
  Report Type: Spontaneous
  Country: DE (occurrence: DE)
  Receive Date: 20200731
  Receipt Date: 20200731
  Transmission Date: 20201103
  Serious: Yes (Hospitalization, Disabling, Other)
  Sender: FDA-Public Use
  Company Number: DE-MYLANLABS-2020M1068572

PATIENT
  Age: 32 Year
  Sex: Female

DRUGS (7)
  1. AMITRIPTYLINE [Suspect]
     Active Substance: AMITRIPTYLINE
     Indication: COMPLEX REGIONAL PAIN SYNDROME
     Dosage: 70 MILLIGRAM, QD
     Dates: start: 201906
  2. PREGABALIN. [Suspect]
     Active Substance: PREGABALIN
     Indication: COMPLEX REGIONAL PAIN SYNDROME
     Dosage: 1200 MG/DIE
     Dates: start: 201906
  3. DULOXETINE. [Suspect]
     Active Substance: DULOXETINE
     Indication: COMPLEX REGIONAL PAIN SYNDROME
     Dosage: 60 MILLIGRAM
     Dates: start: 201906
  4. VERSATIS [Concomitant]
     Active Substance: LIDOCAINE
     Dosage: TWO VERSATIS PATCHES
     Dates: start: 201906
  5. DIMETHYL SULFOXIDE. [Concomitant]
     Active Substance: DIMETHYL SULFOXIDE
     Dates: start: 201906
  6. HYDROMORPHONE [Suspect]
     Active Substance: HYDROMORPHONE
     Indication: COMPLEX REGIONAL PAIN SYNDROME
     Dosage: 64MG/D
     Dates: start: 201906
  7. ACETYLCYSTEINE. [Concomitant]
     Active Substance: ACETYLCYSTEINE
     Dosage: 1200 MG/D
     Dates: start: 201906

REACTIONS (4)
  - Drug ineffective [Unknown]
  - Immobile [Unknown]
  - Pain [Recovered/Resolved]
  - Overdose [Unknown]
